FAERS Safety Report 7777388-7 (Version None)
Quarter: 2011Q3

REPORT INFORMATION
  Report Type: 
  Country: None (occurrence: None)
  Receive Date: 20110926
  Receipt Date: 20110920
  Transmission Date: 20111222
  Serious: Yes (Hospitalization, Other)
  Sender: FDA-Public Use
  Company Number: US-ROXANE LABORATORIES, INC.-2011-RO-01325RO

PATIENT
  Age: 43 Year
  Sex: Female

DRUGS (1)
  1. PROPRANOLOL [Suspect]
     Indication: MIGRAINE
     Dosage: 60 MG

REACTIONS (3)
  - LEFT VENTRICULAR FAILURE [None]
  - CONGESTIVE CARDIOMYOPATHY [None]
  - HYPOTENSION [None]
